FAERS Safety Report 20197198 (Version 2)
Quarter: 2022Q1

REPORT INFORMATION
  Report Type: Report from Study
  Country: DK (occurrence: DK)
  Receive Date: 20211217
  Receipt Date: 20220128
  Transmission Date: 20220423
  Serious: Yes (Other)
  Sender: FDA-Public Use
  Company Number: DK-NOVOPROD-870957

PATIENT
  Age: 67 Year
  Sex: Male
  Weight: 117 kg

DRUGS (1)
  1. SEMAGLUTIDE [Suspect]
     Active Substance: SEMAGLUTIDE
     Indication: Obesity
     Dosage: 0.24,MG,ONCE PER WEEK
     Route: 058
     Dates: start: 20211123

REACTIONS (1)
  - Gastric pH decreased [Recovered/Resolved]

NARRATIVE: CASE EVENT DATE: 20211124
